FAERS Safety Report 4509178-2 (Version None)
Quarter: 2004Q4

REPORT INFORMATION
  Report Type: 
  Country: None (occurrence: None)
  Receive Date: 20041025
  Receipt Date: 20040804
  Transmission Date: 20050328
  Serious: Yes (Hospitalization)
  Sender: FDA-Public Use
  Company Number: US-JNJFOC-20040801822

PATIENT
  Age: 45 Year
  Sex: Female
  Weight: 46.2669 kg

DRUGS (5)
  1. INFLIXIMAB (INFLIXIMAB, RECOMBINANT) LYOPHILIZED POWDER [Suspect]
     Indication: CROHN'S DISEASE
     Dosage: 5 MG/KG, INTRAVENOUS; RECEIVED ONE INFLIXIMAB INFUSION PRIOR
     Route: 042
     Dates: start: 20020729
  2. AZATHIOPRINE [Concomitant]
  3. NARCOTIC ANALGESICS (ANALGESICS) [Concomitant]
  4. ANTIDEPRESSANTS (ANTIDEPRESSANTS) [Concomitant]
  5. OTHER CROHN'S THERAPY (ALL OTHER THERAPEUTIC PRODUCTS) [Concomitant]

REACTIONS (2)
  - ARTHRALGIA [None]
  - PNEUMONIA VIRAL [None]
